FAERS Safety Report 23555157 (Version 1)
Quarter: 2024Q1

REPORT INFORMATION
  Report Type: Spontaneous
  Country: NL (occurrence: NL)
  Receive Date: 20240222
  Receipt Date: 20240222
  Transmission Date: 20240410
  Serious: Yes (Life-Threatening, Other)
  Sender: FDA-Public Use
  Company Number: NL-MYLANLABS-2024M1015571

PATIENT
  Age: 23 Year
  Sex: Female
  Weight: 62 kg

DRUGS (7)
  1. ROCURONIUM BROMIDE [Suspect]
     Active Substance: ROCURONIUM BROMIDE
     Indication: Appendicectomy
     Dosage: UNK (30 MG/ML PER DAY)
     Route: 042
     Dates: start: 20231222, end: 20231222
  2. DEXAMETHASONE [Suspect]
     Active Substance: DEXAMETHASONE
     Indication: Hypersensitivity
     Dosage: UNK , QD
     Route: 042
     Dates: start: 20231222, end: 20231222
  3. CLEMASTINE FUMARATE [Suspect]
     Active Substance: CLEMASTINE FUMARATE
     Indication: Anaphylactic shock
     Dosage: UNK, QD
     Route: 042
     Dates: start: 20231222, end: 20231222
  4. PROPOFOL [Concomitant]
     Active Substance: PROPOFOL
     Indication: Surgery
     Dosage: UNK (200 MG/ML EVERY DAY)
     Route: 042
     Dates: start: 20231222, end: 20231222
  5. CEFAZOLIN SODIUM [Concomitant]
     Active Substance: CEFAZOLIN SODIUM
     Indication: Antibiotic prophylaxis
     Dosage: UNK (200 MG/ML EVERY DAY)
     Route: 042
     Dates: start: 20231222, end: 20231222
  6. SUFENTANIL [Concomitant]
     Active Substance: SUFENTANIL
     Indication: Analgesic therapy
     Dosage: 20 MICROGRAM, QD
     Route: 042
     Dates: start: 20231222, end: 20231222
  7. METRONIDAZOLE [Concomitant]
     Active Substance: METRONIDAZOLE
     Indication: Antibiotic prophylaxis
     Dosage: UNK (500 MG/ML EVERY DAY)
     Route: 042
     Dates: start: 20231222, end: 20231222

REACTIONS (4)
  - Anaphylactic shock [Recovered/Resolved]
  - Fatigue [Recovered/Resolved]
  - Confusional state [Recovered/Resolved]
  - Aphasia [Not Recovered/Not Resolved]

NARRATIVE: CASE EVENT DATE: 20231222
